FAERS Safety Report 5163805-8 (Version None)
Quarter: 2006Q4

REPORT INFORMATION
  Report Type: 
  Country: None (occurrence: None)
  Receive Date: 20061129
  Receipt Date: 20061129
  Transmission Date: 20070319
  Serious: Yes (Life-Threatening)
  Sender: FDA-Public Use
  Company Number: None

PATIENT
  Sex: Male

DRUGS (1)
  1. THALIDOMIDE [Suspect]
     Indication: MULTIPLE MYELOMA
     Dosage: 100 MG DAILY PO
     Route: 048
     Dates: start: 20060821, end: 20061016

REACTIONS (2)
  - PULMONARY EMBOLISM [None]
  - RASH MACULO-PAPULAR [None]
